FAERS Safety Report 20719407 (Version 1)
Quarter: 2022Q2

REPORT INFORMATION
  Report Type: Spontaneous
  Country: US (occurrence: US)
  Receive Date: 20220418
  Receipt Date: 20220418
  Transmission Date: 20220721
  Serious: Yes (Other)
  Sender: FDA-Public Use
  Company Number: US-MYLANLABS-2022M1027466

PATIENT
  Age: 38 Year
  Sex: Female

DRUGS (4)
  1. LETROZOLE [Suspect]
     Active Substance: LETROZOLE
     Indication: Lymphangioleiomyomatosis
     Dosage: 2.5 MILLIGRAM, QD
     Route: 048
  2. LEUPROLIDE [Suspect]
     Active Substance: LEUPROLIDE
     Indication: Lymphangioleiomyomatosis
     Dosage: UNK
     Route: 030
  3. ULIPRISTAL ACETATE [Suspect]
     Active Substance: ULIPRISTAL ACETATE
     Indication: Lymphangioleiomyomatosis
     Dosage: 15 MILLIGRAM, QD
     Route: 048
  4. BEVACIZUMAB [Concomitant]
     Active Substance: BEVACIZUMAB
     Indication: Lymphangioleiomyomatosis
     Dosage: 15 MILLIGRAM/KILOGRAM, Q3W
     Route: 065

REACTIONS (2)
  - Treatment failure [Unknown]
  - Off label use [Unknown]
